FAERS Safety Report 7860349-7 (Version None)
Quarter: 2011Q4

REPORT INFORMATION
  Report Type: 
  Country: None (occurrence: None)
  Receive Date: 20111027
  Receipt Date: 20111013
  Transmission Date: 20120403
  Serious: Yes (Hospitalization)
  Sender: FDA-Public Use
  Company Number: PHEH2011US06887

PATIENT
  Sex: Female

DRUGS (3)
  1. NEXAVAR [Concomitant]
  2. GLEEVEC [Suspect]
     Indication: GASTRIC CANCER
     Dosage: 400 MG, BID
     Route: 048
     Dates: start: 20091101, end: 20110101
  3. SUTENT [Concomitant]

REACTIONS (5)
  - NEOPLASM [None]
  - SCAR [None]
  - INTESTINAL OBSTRUCTION [None]
  - FALL [None]
  - SYNCOPE [None]
